FAERS Safety Report 12404894 (Version 3)
Quarter: 2017Q3

REPORT INFORMATION
  Report Type: Report from Study
  Country: US (occurrence: US)
  Receive Date: 20160525
  Receipt Date: 20170927
  Transmission Date: 20171127
  Serious: Yes (Death, Hospitalization, Other)
  Sender: FDA-Public Use
  Company Number: US-GILEAD-2016-0211718

PATIENT
  Age: 70 Year
  Sex: Female
  Weight: 64.85 kg

DRUGS (35)
  1. ASPIRIN 81 [Concomitant]
     Active Substance: ASPIRIN
  2. DULOXETINE. [Concomitant]
     Active Substance: DULOXETINE
  3. OXYGEN. [Concomitant]
     Active Substance: OXYGEN
  4. XARELTO [Concomitant]
     Active Substance: RIVAROXABAN
  5. BUMETANIDE. [Concomitant]
     Active Substance: BUMETANIDE
  6. OFLOXACIN. [Concomitant]
     Active Substance: OFLOXACIN
  7. MORPHINE [Concomitant]
     Active Substance: MORPHINE
  8. DIGITEK [Concomitant]
     Active Substance: DIGOXIN
  9. CALCIUM CARBONATE. [Concomitant]
     Active Substance: CALCIUM CARBONATE
  10. LORAZEPAM. [Concomitant]
     Active Substance: LORAZEPAM
  11. LYRICA [Concomitant]
     Active Substance: PREGABALIN
  12. DIURIL                             /00011801/ [Concomitant]
  13. AMBRISENTAN [Suspect]
     Active Substance: AMBRISENTAN
     Indication: PRODUCT USED FOR UNKNOWN INDICATION
     Dosage: 5 MG, QD
     Route: 048
     Dates: start: 20150209
  14. FISH OIL [Concomitant]
     Active Substance: FISH OIL
  15. CYMBALTA [Concomitant]
     Active Substance: DULOXETINE HYDROCHLORIDE
  16. POTASSIUM CHLORIDE. [Concomitant]
     Active Substance: POTASSIUM CHLORIDE
  17. AMBRISENTAN [Suspect]
     Active Substance: AMBRISENTAN
     Dosage: 10 MG, UNK
     Route: 048
  18. CARVEDILOL. [Concomitant]
     Active Substance: CARVEDILOL
  19. NORCO [Concomitant]
     Active Substance: ACETAMINOPHEN\HYDROCODONE BITARTRATE
  20. MULTIVITAMIN                       /00097801/ [Concomitant]
     Active Substance: VITAMINS
  21. SILDENAFIL. [Concomitant]
     Active Substance: SILDENAFIL
  22. TYLENOL [Concomitant]
     Active Substance: ACETAMINOPHEN
  23. VITAMIN D3 [Concomitant]
     Active Substance: CHOLECALCIFEROL
  24. FUROSEMIDE. [Concomitant]
     Active Substance: FUROSEMIDE
  25. MS CONTIN [Concomitant]
     Active Substance: MORPHINE SULFATE
  26. ADCIRCA [Concomitant]
     Active Substance: TADALAFIL
  27. VITAMIN C [Concomitant]
     Active Substance: ASCORBIC ACID
  28. RESTASIS [Concomitant]
     Active Substance: CYCLOSPORINE
  29. TADALAFIL [Concomitant]
     Active Substance: TADALAFIL
  30. FERROUS SULFATE. [Concomitant]
     Active Substance: FERROUS SULFATE
  31. SPIRONOLACTONE. [Concomitant]
     Active Substance: SPIRONOLACTONE
  32. MIRALAX [Concomitant]
     Active Substance: POLYETHYLENE GLYCOL 3350
  33. DIGOXIN. [Concomitant]
     Active Substance: DIGOXIN
  34. PREVACID [Concomitant]
     Active Substance: LANSOPRAZOLE
  35. LANSOPRAZOLE. [Concomitant]
     Active Substance: LANSOPRAZOLE

REACTIONS (5)
  - Generalised oedema [Recovered/Resolved]
  - Dyspnoea [Recovered/Resolved]
  - Fluid retention [Unknown]
  - Death [Fatal]
  - Acute respiratory failure [Recovered/Resolved]

NARRATIVE: CASE EVENT DATE: 20160418
